FAERS Safety Report 11365077 (Version 1)
Quarter: 2015Q3

REPORT INFORMATION
  Report Type: Spontaneous
  Country: IL (occurrence: IL)
  Receive Date: 20150811
  Receipt Date: 20150811
  Transmission Date: 20151125
  Serious: Yes (Hospitalization)
  Sender: FDA-Public Use
  Company Number: IL-IMPAX LABORATORIES, INC-2015-IPXL-00812

PATIENT
  Age: 73 Year
  Sex: Male

DRUGS (1)
  1. ACARBOSE. [Suspect]
     Active Substance: ACARBOSE
     Indication: TYPE 2 DIABETES MELLITUS
     Dosage: 50 MG, EVERY 8HR
     Route: 065

REACTIONS (3)
  - Portal venous gas [Recovered/Resolved]
  - Pneumoperitoneum [Recovered/Resolved]
  - Pneumatosis intestinalis [Recovered/Resolved]
